FAERS Safety Report 17940656 (Version 6)
Quarter: 2020Q3

REPORT INFORMATION
  Report Type: Spontaneous
  Country: None (occurrence: FR)
  Receive Date: 20200625
  Receipt Date: 20200902
  Transmission Date: 20201103
  Serious: Yes (Hospitalization, Other)
  Sender: FDA-Public Use
  Company Number: FR-SA-2020SA152465

PATIENT

DRUGS (26)
  1. BLEOMYCIN HYDROCHLORIDE [Interacting]
     Active Substance: BLEOMYCIN HYDROCHLORIDE
     Indication: HODGKIN^S DISEASE
     Dosage: 10 MG/M2, QD, INJECTION
     Route: 064
     Dates: start: 20171108
  2. SODIUM CHLORIDE. [Suspect]
     Active Substance: SODIUM CHLORIDE
     Dosage: 250 ML, QD
     Route: 064
     Dates: start: 20171108
  3. DOXORUBICIN [Interacting]
     Active Substance: DOXORUBICIN
     Indication: HODGKIN^S DISEASE
     Dosage: 25 MG/M2, QD, 3 TRIMESTER
     Route: 064
     Dates: start: 20171108
  4. VINBLASTINE SULFATE. [Interacting]
     Active Substance: VINBLASTINE SULFATE
     Dosage: 6 MG/M2, QD
     Route: 064
  5. PREDNISONE. [Interacting]
     Active Substance: PREDNISONE
     Dosage: 80 MILLIGRAM, QD
     Route: 064
     Dates: start: 2017
  6. GLUCOSE [Interacting]
     Active Substance: DEXTROSE
     Dosage: , 20 ML, QD, 3 TRIMESTER
     Route: 064
     Dates: start: 20171108
  7. DEXAMETHASONE. [Interacting]
     Active Substance: DEXAMETHASONE
     Indication: HODGKIN^S DISEASE
     Dosage: 10 MG, QD, 3 TRIMESTER
     Route: 064
     Dates: start: 20171108
  8. PREDNISONE. [Interacting]
     Active Substance: PREDNISONE
     Dosage: 80 UNK
     Route: 064
  9. DEXAMETHASONE. [Interacting]
     Active Substance: DEXAMETHASONE
     Indication: PROPHYLAXIS OF NAUSEA AND VOMITING
  10. VINBLASTINE SULFATE. [Interacting]
     Active Substance: VINBLASTINE SULFATE
     Dosage: 10 MG, QD
     Route: 064
  11. AMOXICILLIN. [Interacting]
     Active Substance: AMOXICILLIN
     Indication: ANTIBIOTIC THERAPY
     Dosage: 3 TRIMESTER
     Route: 064
  12. ONDANSETRON [Interacting]
     Active Substance: ONDANSETRON
     Dosage: UNK, ORODISPERSIBLE FILM
     Route: 064
     Dates: start: 2017
  13. GLUCOSE [Interacting]
     Active Substance: DEXTROSE
     Indication: HODGKIN^S DISEASE
     Dosage: 250 ML, QD
     Route: 064
     Dates: start: 20171108
  14. DOXORUBICIN [Interacting]
     Active Substance: DOXORUBICIN
     Dosage: 48 MG, QD, 3 TRIMESTER
     Route: 064
  15. ONDANSETRON [Interacting]
     Active Substance: ONDANSETRON
     Indication: FOETAL EXPOSURE DURING PREGNANCY
     Dosage: 16 MILLIGRAM, QD, ORODISPERSABLE FILM
     Route: 064
     Dates: start: 20171108, end: 201711
  16. VINBLASTINE SULFATE. [Interacting]
     Active Substance: VINBLASTINE SULFATE
     Indication: HODGKIN^S DISEASE
     Dosage: 5 MG/M2, QD
     Route: 064
     Dates: start: 20171108
  17. PREDNISONE. [Interacting]
     Active Substance: PREDNISONE
     Indication: PRODUCT USED FOR UNKNOWN INDICATION
     Dosage: 40 MILLIGRAM, QD
     Route: 064
     Dates: start: 201711, end: 201711
  18. DACARBAZINE. [Interacting]
     Active Substance: DACARBAZINE
     Indication: HODGKIN^S DISEASE
     Dosage: 375 MG/M2, QD, POWDER FOR INFUSION
     Route: 064
     Dates: start: 20171108
  19. DACARBAZINE. [Interacting]
     Active Substance: DACARBAZINE
     Dosage: 730 MG, QD,3 TRIMESTER
     Route: 064
     Dates: start: 20171108
  20. ENOXAPARIN SODIUM. [Suspect]
     Active Substance: ENOXAPARIN SODIUM
     Indication: PRODUCT USED FOR UNKNOWN INDICATION
     Dosage: 4000 INTERNATIONAL UNIT, BID
     Route: 064
     Dates: start: 2017
  21. CAFFEINE. [Concomitant]
     Active Substance: CAFFEINE
     Route: 042
  22. LANSOPRAZOLE. [Interacting]
     Active Substance: LANSOPRAZOLE
     Indication: PRODUCT USED FOR UNKNOWN INDICATION
     Dosage: 30 MILLIGRAM, QD
     Route: 064
     Dates: start: 2017
  23. BLEOMYCIN HYDROCHLORIDE [Interacting]
     Active Substance: BLEOMYCIN HYDROCHLORIDE
     Dosage: 19.2 MG, QD, INJECTION
     Route: 064
     Dates: start: 20171108
  24. VALACICLOVIR [Interacting]
     Active Substance: VALACYCLOVIR HYDROCHLORIDE
     Indication: PRODUCT USED FOR UNKNOWN INDICATION
     Dosage: 500 MG, QD
     Route: 064
     Dates: start: 2017
  25. ONDANSETRON [Interacting]
     Active Substance: ONDANSETRON
     Indication: PROPHYLAXIS OF NAUSEA AND VOMITING
     Dosage: 8 MG, BID
     Route: 064
     Dates: start: 2017, end: 201711
  26. SODIUM CHLORIDE. [Suspect]
     Active Substance: SODIUM CHLORIDE
     Indication: HODGKIN^S DISEASE
     Dosage: 20 ML, QD, 3 TRIMESTER
     Route: 064
     Dates: start: 20171108

REACTIONS (7)
  - Cardiotoxicity [Recovered/Resolved]
  - Cardiac dysfunction [Recovered/Resolved]
  - Foetal exposure during pregnancy [Recovered/Resolved]
  - Premature baby [Recovered/Resolved]
  - Troponin increased [Recovered/Resolved]
  - Off label use [Unknown]
  - Drug interaction [Recovered/Resolved]

NARRATIVE: CASE EVENT DATE: 2017
